FAERS Safety Report 8545580-X (Version None)
Quarter: 2012Q3

REPORT INFORMATION
  Report Type: 
  Country: None (occurrence: None)
  Receive Date: 20120727
  Receipt Date: 20111027
  Transmission Date: 20120928
  Serious: No
  Sender: FDA-Public Use
  Company Number: US-ASTRAZENECA-2011SE64871

PATIENT
  Sex: Female
  Weight: 108.9 kg

DRUGS (1)
  1. SEROQUEL XR [Suspect]
     Indication: BIPOLAR DISORDER
     Route: 048

REACTIONS (6)
  - NAUSEA [None]
  - FEELING ABNORMAL [None]
  - PAIN [None]
  - DIARRHOEA [None]
  - CONSTIPATION [None]
  - DRUG DOSE OMISSION [None]
